FAERS Safety Report 21886578 (Version 1)
Quarter: 2023Q1

REPORT INFORMATION
  Report Type: Spontaneous
  Country: US (occurrence: None)
  Receive Date: 20230119
  Receipt Date: 20230119
  Transmission Date: 20230418
  Serious: No
  Sender: FDA-Public Use
  Company Number: None

PATIENT
  Age: 11 Year
  Sex: Male
  Weight: 27.9 kg

DRUGS (1)
  1. ATOMOXETINE [Suspect]
     Active Substance: ATOMOXETINE
     Indication: Attention deficit hyperactivity disorder
     Dates: start: 20221121, end: 20230109

REACTIONS (2)
  - Anxiety [None]
  - Therapy cessation [None]

NARRATIVE: CASE EVENT DATE: 20230101
